FAERS Safety Report 6655197-X (Version None)
Quarter: 2010Q1

REPORT INFORMATION
  Report Type: 
  Country: None (occurrence: None)
  Receive Date: 20100329
  Receipt Date: 20100323
  Transmission Date: 20100710
  Serious: Yes (Life-Threatening)
  Sender: FDA-Public Use
  Company Number: US-ASTRAZENECA-2010SE12664

PATIENT
  Age: 58 Year
  Sex: Male

DRUGS (5)
  1. NEXIUM [Suspect]
     Route: 048
  2. ZOCOR [Concomitant]
  3. GABAPENTIN [Concomitant]
  4. LASIX [Concomitant]
  5. HEART MEDICINE [Concomitant]

REACTIONS (1)
  - MYOCARDIAL INFARCTION [None]
